FAERS Safety Report 4383592-0 (Version None)
Quarter: 2004Q2

REPORT INFORMATION
  Report Type: 
  Country: None (occurrence: None)
  Receive Date: 20040618
  Receipt Date: 20040527
  Transmission Date: 20050107
  Serious: Yes (Other)
  Sender: FDA-Public Use
  Company Number: USA040568631

PATIENT
  Age: 47 Year
  Sex: Male
  Weight: 109 kg

DRUGS (14)
  1. XIGRIS [Suspect]
     Indication: SEPSIS
     Dosage: 24 UG/KG/HR
     Dates: start: 20040516, end: 20040519
  2. IMIPENEM [Concomitant]
  3. NORVASC [Concomitant]
  4. ASPIRIN [Concomitant]
  5. AVALIDE [Concomitant]
  6. PLETAL [Concomitant]
  7. CIPROFLOXACIN [Concomitant]
  8. ZOSYN [Concomitant]
  9. LABETALOL HCL [Concomitant]
  10. DIPRIVAN [Concomitant]
  11. FLAGYL [Concomitant]
  12. FLUCONAZOLE [Concomitant]
  13. ATIVAN [Concomitant]
  14. MORPHINE [Concomitant]

REACTIONS (2)
  - CONDITION AGGRAVATED [None]
  - PYREXIA [None]
